FAERS Safety Report 17531460 (Version 1)
Quarter: 2020Q1

REPORT INFORMATION
  Report Type: Spontaneous
  Country: CN (occurrence: CN)
  Receive Date: 20200312
  Receipt Date: 20200312
  Transmission Date: 20200409
  Serious: Yes (Hospitalization, Other)
  Sender: FDA-Public Use
  Company Number: CN-VIIV HEALTHCARE LIMITED-CN2020APC042858

PATIENT
  Age: 8 Year
  Sex: Female

DRUGS (2)
  1. COMBIVIR [Suspect]
     Active Substance: LAMIVUDINE\ZIDOVUDINE
     Indication: VIRAL INFECTION
     Dosage: 0.450 G, BID
     Route: 048
     Dates: start: 20190902, end: 20200302
  2. NEVIRAPINE. [Concomitant]
     Active Substance: NEVIRAPINE
     Indication: VIRAL INFECTION
     Dosage: 0.2 G, BID
     Route: 048
     Dates: start: 20190902, end: 20200302

REACTIONS (3)
  - Bone marrow failure [Not Recovered/Not Resolved]
  - Condition aggravated [Unknown]
  - Aplastic anaemia [Unknown]

NARRATIVE: CASE EVENT DATE: 20200302
